FAERS Safety Report 16587253 (Version 2)
Quarter: 2019Q3

REPORT INFORMATION
  Report Type: Spontaneous
  Country: US (occurrence: US)
  Receive Date: 20190717
  Receipt Date: 20190726
  Transmission Date: 20191004
  Serious: No
  Sender: FDA-Public Use
  Company Number: US-PFIZER INC-2019303713

PATIENT
  Age: 47 Year
  Sex: Female

DRUGS (9)
  1. LYRICA [Suspect]
     Active Substance: PREGABALIN
     Indication: DYSAESTHESIA
  2. LYRICA [Suspect]
     Active Substance: PREGABALIN
     Indication: BACK PAIN
     Dosage: UNK
  3. VERAPAMIL HCL [Concomitant]
     Active Substance: VERAPAMIL HYDROCHLORIDE
     Dosage: 360 MG, UNK
     Route: 048
  4. RITUXAN [Concomitant]
     Active Substance: RITUXIMAB
     Dosage: UNK, (15 EVERY 4 MONTHS)
  5. RITUXAN [Concomitant]
     Active Substance: RITUXIMAB
     Indication: MULTIPLE SCLEROSIS
     Dosage: 1 G, DAILY
  6. LYRICA [Suspect]
     Active Substance: PREGABALIN
     Indication: INTERVERTEBRAL DISC DISORDER
  7. LETROZOLE. [Concomitant]
     Active Substance: LETROZOLE
     Indication: BLOOD OESTROGEN INCREASED
     Dosage: UNK
  8. LETROZOLE. [Concomitant]
     Active Substance: LETROZOLE
     Indication: NEOPLASM PROPHYLAXIS
  9. HYDROCODONE [Concomitant]
     Active Substance: HYDROCODONE
     Indication: BREAKTHROUGH PAIN
     Dosage: UNK UNK, AS NEEDED

REACTIONS (4)
  - Drug ineffective [Unknown]
  - Loss of personal independence in daily activities [Unknown]
  - Nuclear magnetic resonance imaging brain abnormal [Unknown]
  - Fatigue [Unknown]
